FAERS Safety Report 4650024-4 (Version None)
Quarter: 2005Q2

REPORT INFORMATION
  Report Type: 
  Country: None (occurrence: None)
  Receive Date: 20050502
  Receipt Date: 20050425
  Transmission Date: 20051028
  Serious: Yes (Other)
  Sender: FDA-Public Use
  Company Number: US-JNJFOC-20050406494

PATIENT
  Sex: Female
  Weight: 21.77 kg

DRUGS (1)
  1. CONCERTA [Suspect]
     Route: 049

REACTIONS (3)
  - RASH [None]
  - SOCIAL AVOIDANT BEHAVIOUR [None]
  - WEIGHT DECREASED [None]
